FAERS Safety Report 5425560-3 (Version None)
Quarter: 2007Q3

REPORT INFORMATION
  Report Type: 
  Country: None (occurrence: None)
  Receive Date: 20070824
  Receipt Date: 20070813
  Transmission Date: 20080115
  Serious: Yes (Other)
  Sender: FDA-Public Use
  Company Number: HU-PFIZER INC-2007060425

PATIENT
  Age: 33 Year
  Sex: Male

DRUGS (2)
  1. VARENICLINE TABLETS [Suspect]
     Indication: SMOKING CESSATION THERAPY
     Route: 048
     Dates: start: 20070601, end: 20070719
  2. INSULIN HUMAN [Concomitant]
     Route: 058

REACTIONS (2)
  - DIABETES MELLITUS [None]
  - NAUSEA [None]
